FAERS Safety Report 15862874 (Version 2)
Quarter: 2019Q1

REPORT INFORMATION
  Report Type: Report from Study
  Country: JP (occurrence: JP)
  Receive Date: 20190124
  Receipt Date: 20190304
  Transmission Date: 20190417
  Serious: Yes (Death, Life-Threatening, Hospitalization, Other)
  Sender: FDA-Public Use
  Company Number: JP-SA-2019SA018447

PATIENT
  Age: 68 Year
  Sex: Female
  Weight: 41 kg

DRUGS (15)
  1. AFLIBERCEPT [Suspect]
     Active Substance: AFLIBERCEPT
     Dosage: 4 MG/KG
     Route: 041
     Dates: start: 20180405, end: 20180405
  2. FLUOROURACIL. [Suspect]
     Active Substance: FLUOROURACIL
     Dosage: 236 MG/M2, QOW
     Route: 042
     Dates: start: 20180201, end: 20180215
  3. CALCIUM LEVOFOLINATE [Suspect]
     Active Substance: LEVOLEUCOVORIN CALCIUM
     Indication: RECTAL CANCER
     Dosage: 200 MG/M2, QOW
     Route: 065
     Dates: start: 20171221, end: 20180104
  4. IRINOTECAN [Suspect]
     Active Substance: IRINOTECAN
     Indication: RECTAL CANCER
     Dosage: 87 MG/M2, QOW
     Route: 065
     Dates: start: 20171221, end: 20180104
  5. AFLIBERCEPT [Suspect]
     Active Substance: AFLIBERCEPT
     Indication: RECTAL CANCER
     Dosage: 4 MG/KG, QOW
     Route: 041
     Dates: start: 20171221, end: 20180104
  6. FLUOROURACIL. [Suspect]
     Active Substance: FLUOROURACIL
     Dosage: 1440 MG/M2, QOW
     Route: 041
     Dates: start: 20171221, end: 20180104
  7. FLUOROURACIL. [Suspect]
     Active Substance: FLUOROURACIL
     Dosage: 1440 MG/M2, QOW
     Route: 041
     Dates: start: 20180201, end: 20180215
  8. IRINOTECAN [Suspect]
     Active Substance: IRINOTECAN
     Dosage: 87 MG/M2
     Route: 065
     Dates: start: 20180405, end: 20180405
  9. CALCIUM LEVOFOLINATE [Suspect]
     Active Substance: LEVOLEUCOVORIN CALCIUM
     Dosage: 200 MG/M2, QOW
     Route: 065
     Dates: start: 20180201, end: 20180215
  10. CALCIUM LEVOFOLINATE [Suspect]
     Active Substance: LEVOLEUCOVORIN CALCIUM
     Dosage: 200 MG/M2
     Route: 065
     Dates: start: 20180405, end: 20180405
  11. FLUOROURACIL. [Suspect]
     Active Substance: FLUOROURACIL
     Dosage: 236 MG/M2
     Route: 042
     Dates: start: 20180405, end: 20180405
  12. FLUOROURACIL. [Suspect]
     Active Substance: FLUOROURACIL
     Dosage: 1440 MG/M2
     Route: 041
     Dates: start: 20180405, end: 20180405
  13. FLUOROURACIL. [Suspect]
     Active Substance: FLUOROURACIL
     Indication: RECTAL CANCER
     Dosage: 236 MG/M2, QOW
     Route: 042
     Dates: start: 20171221, end: 20180104
  14. IRINOTECAN [Suspect]
     Active Substance: IRINOTECAN
     Dosage: 87 MG/M2, QOW
     Route: 065
     Dates: start: 20180201, end: 20180215
  15. AFLIBERCEPT [Suspect]
     Active Substance: AFLIBERCEPT
     Dosage: 4 MG/KG, QOW
     Route: 041
     Dates: start: 20180201, end: 20180215

REACTIONS (3)
  - Neutrophil count decreased [Recovered/Resolved]
  - Large intestine perforation [Recovering/Resolving]
  - Fatigue [Recovered/Resolved]

NARRATIVE: CASE EVENT DATE: 20180118
